FAERS Safety Report 15889990 (Version 3)
Quarter: 2019Q1

REPORT INFORMATION
  Report Type: Spontaneous
  Country: IT (occurrence: IT)
  Receive Date: 20190130
  Receipt Date: 20190329
  Transmission Date: 20190417
  Serious: Yes (Hospitalization)
  Sender: FDA-Public Use
  Company Number: IT-JNJFOC-20190132329

PATIENT
  Age: 56 Year
  Sex: Female

DRUGS (2)
  1. CAELYX [Suspect]
     Active Substance: DOXORUBICIN HYDROCHLORIDE
     Indication: OVARIAN CANCER RECURRENT
     Route: 042
     Dates: start: 20180824, end: 20181212
  2. YONDELIS [Suspect]
     Active Substance: TRABECTEDIN
     Indication: OVARIAN CANCER RECURRENT
     Route: 042
     Dates: start: 20180824, end: 20181212

REACTIONS (4)
  - Anaemia [Recovered/Resolved]
  - Febrile neutropenia [Recovered/Resolved]
  - Thrombocytopenia [Recovered/Resolved]
  - Pneumonia [Recovered/Resolved]

NARRATIVE: CASE EVENT DATE: 20181222
